FAERS Safety Report 15479699 (Version 1)
Quarter: 2018Q4

REPORT INFORMATION
  Report Type: Spontaneous
  Country: IN (occurrence: IN)
  Receive Date: 20181009
  Receipt Date: 20181009
  Transmission Date: 20190205
  Serious: Yes (Other)
  Sender: FDA-Public Use
  Company Number: IN-IMPAX LABORATORIES, INC-2018-IPXL-03283

PATIENT
  Age: 30 Year
  Sex: Female
  Weight: 71 kg

DRUGS (2)
  1. METFORMIN HYDROCHLORIDE ER [Suspect]
     Active Substance: METFORMIN HYDROCHLORIDE
     Indication: TYPE 2 DIABETES MELLITUS
     Dosage: UNK
     Route: 065
  2. INSULIN [Suspect]
     Active Substance: INSULIN NOS
     Indication: TYPE 2 DIABETES MELLITUS
     Dosage: UNK
     Route: 065

REACTIONS (5)
  - Diabetic retinopathy [Unknown]
  - Hypercholesterolaemia [Unknown]
  - Diabetes mellitus inadequate control [Unknown]
  - Microalbuminuria [Unknown]
  - Hypertension [Unknown]
